FAERS Safety Report 18018288 (Version 1)
Quarter: 2020Q3

REPORT INFORMATION
  Report Type: Spontaneous
  Country: US (occurrence: US)
  Receive Date: 20200714
  Receipt Date: 20200714
  Transmission Date: 20201103
  Serious: No
  Sender: FDA-Public Use
  Company Number: US-AMGEN-USASP2020111372

PATIENT
  Sex: Male

DRUGS (5)
  1. OTEZLA [Suspect]
     Active Substance: APREMILAST
     Indication: PSORIATIC ARTHROPATHY
     Dosage: 30 MILLIGRAM (TABLET)
     Route: 065
  2. CALCIUM+D3 [Concomitant]
     Active Substance: CALCIUM\CHOLECALCIFEROL
     Dosage: UNK 600 MG?500 TABLET ER
     Route: 065
  3. METOPROLOL [METOPROLOL TARTRATE] [Concomitant]
     Active Substance: METOPROLOL TARTRATE
     Dosage: 100 MILLIGRAM
  4. XELJANZ XR [Suspect]
     Active Substance: TOFACITINIB CITRATE
     Indication: PSORIATIC ARTHROPATHY
     Dosage: 11 MILLIGRAM, QD
     Route: 048
     Dates: start: 201912
  5. VITAMIN D [VITAMIN D NOS] [Concomitant]
     Active Substance: VITAMIN D NOS
     Dosage: 10 MICROGRAM
     Route: 065

REACTIONS (2)
  - Depression [Unknown]
  - Diarrhoea [Unknown]

NARRATIVE: CASE EVENT DATE: 2020
